FAERS Safety Report 6536031-5 (Version None)
Quarter: 2010Q1

REPORT INFORMATION
  Report Type: 
  Country: None (occurrence: None)
  Receive Date: 20100113
  Receipt Date: 20100111
  Transmission Date: 20100710
  Serious: Yes (Life-Threatening, Hospitalization, Other)
  Sender: FDA-Public Use
  Company Number: BE-BRISTOL-MYERS SQUIBB COMPANY-14900351

PATIENT
  Age: 66 Year
  Sex: Male

DRUGS (10)
  1. ORENCIA [Suspect]
     Indication: RHEUMATOID ARTHRITIS
     Dosage: RECEIVED 3 TIMES (1ST ADMINISTRATION 5OCT'09, THEN 19OCT'09, AND 16NOV'09).
     Route: 042
     Dates: start: 20091005
  2. MEDAZOL [Suspect]
     Dates: end: 20091001
  3. BUMETANIDE [Concomitant]
  4. TRAZODONE HCL [Concomitant]
  5. CALCIUM CARBONATE [Concomitant]
  6. LORAZEPAM [Concomitant]
  7. SIMVASTATIN [Concomitant]
  8. SPIRONOLACTONE [Concomitant]
  9. OMEPRAZOLE [Concomitant]
  10. CORDARONE [Concomitant]

REACTIONS (5)
  - CLOSTRIDIAL INFECTION [None]
  - DIARRHOEA HAEMORRHAGIC [None]
  - GASTRIC ULCER [None]
  - PLATELET COUNT DECREASED [None]
  - WHITE BLOOD CELL COUNT DECREASED [None]
